FAERS Safety Report 4955064-3 (Version None)
Quarter: 2006Q1

REPORT INFORMATION
  Report Type: 
  Country: None (occurrence: None)
  Receive Date: 20060322
  Receipt Date: 20060301
  Transmission Date: 20060701
  Serious: Yes (Hospitalization, Disabling)
  Sender: FDA-Public Use
  Company Number: US94041780A

PATIENT
  Age: 61 Year
  Sex: Female

DRUGS (12)
  1. INSULIN, ANIMAL [Suspect]
     Indication: DIABETES MELLITUS
  2. HUMULIN (HUMAN INSULIN (RDNA ORIGIN) ULTRALENTE [Suspect]
     Indication: DIABETES MELLITUS
     Dosage: 10 U, DAILY (1/D), SUBCUTANEOUS
     Route: 058
  3. HUMULIN R [Suspect]
     Indication: DIABETES MELLITUS
     Dosage: 15 U, DAILY (1/D), SUBCUTANEOUS
     Route: 058
  4. HUMULIN N [Suspect]
     Indication: DIABETES MELLITUS
  5. INSULIN, ANIMAL (INSULIN, ANIMAL) [Suspect]
     Indication: DIABETES MELLITUS
  6. INSULIN, ANIMAL (INSULIN, ANIMAL) [Suspect]
     Indication: DIABETES MELLITUS
  7. INSULIN, ANIMAL (INSULIN, ANIMAL) VIAL [Suspect]
     Indication: DIABETES MELLITUS
  8. INSULIN, ANIMAL (INSULIN, ANIMAL PORK PROTAMINE ZINC) VIAL [Suspect]
     Indication: DIABETES MELLITUS
  9. INSULIN, ANIMAL (INSULIN, ANIMAL PORK REGULAR) VIAL [Suspect]
     Indication: DIABETES MELLITUS
  10. HUMULIN (HUMAN INSULIN (RDNA ORIGIN) [Suspect]
     Indication: DIABETES MELLITUS
  11. BENADRYL [Concomitant]
  12. LANTUS [Concomitant]

REACTIONS (15)
  - ACCIDENT [None]
  - BLOOD GLUCOSE DECREASED [None]
  - BLOOD GLUCOSE FLUCTUATION [None]
  - BLOOD GLUCOSE INCREASED [None]
  - CAESAREAN SECTION [None]
  - DIABETES MELLITUS INADEQUATE CONTROL [None]
  - DRUG EXPOSURE DURING PREGNANCY [None]
  - DRUG HYPERSENSITIVITY [None]
  - DRUG INEFFECTIVE [None]
  - DRUG INTOLERANCE [None]
  - PREGNANCY [None]
  - PREMATURE BABY [None]
  - PROLONGED LABOUR [None]
  - SPINAL FRACTURE [None]
  - SWELLING FACE [None]
